FAERS Safety Report 5709044-0 (Version None)
Quarter: 2008Q2

REPORT INFORMATION
  Report Type: 
  Country: None (occurrence: None)
  Receive Date: 20080416
  Receipt Date: 20080416
  Transmission Date: 20081010
  Serious: Yes (Death)
  Sender: FDA-Public Use
  Company Number: None

PATIENT
  Age: 47 Year
  Sex: Male
  Weight: 95 kg

DRUGS (1)
  1. MUROMONAB - CD3 ORTHOCLONE OKT3 [Suspect]
     Indication: LIVER TRANSPLANT REJECTION
     Dosage: 5MG QDAY IV
     Route: 042
     Dates: start: 20080413

REACTIONS (7)
  - ANXIETY [None]
  - BLOOD PRESSURE INCREASED [None]
  - CARDIAC ARREST [None]
  - DYSPNOEA [None]
  - NEUTROPHIL COUNT INCREASED [None]
  - PULMONARY OEDEMA [None]
  - TACHYPNOEA [None]
